FAERS Safety Report 9553814 (Version 1)
Quarter: 2013Q3

REPORT INFORMATION
  Report Type: Spontaneous
  Country: IT (occurrence: None)
  Receive Date: 20130923
  Receipt Date: 20130923
  Transmission Date: 20140515
  Serious: Yes (Hospitalization)
  Sender: FDA-Public Use
  Company Number: 2013P1019480

PATIENT
  Age: 22 Year
  Sex: Female

DRUGS (2)
  1. ZANTAC [Suspect]
     Indication: NAUSEA
     Route: 042
     Dates: start: 20130821, end: 201308
  2. LEVOPRAID [Suspect]
     Indication: NAUSEA
     Route: 042
     Dates: start: 20130821

REACTIONS (5)
  - Loss of consciousness [None]
  - Clonus [None]
  - Asthenia [None]
  - Headache [None]
  - Vertigo [None]
